FAERS Safety Report 10100627 (Version 1)
Quarter: 2014Q2

REPORT INFORMATION
  Report Type: Spontaneous
  Country: GB (occurrence: GB)
  Receive Date: 20140423
  Receipt Date: 20140423
  Transmission Date: 20141212
  Serious: Yes (Life-Threatening, Hospitalization)
  Sender: FDA-Public Use
  Company Number: GB-MYLANLABS-2014S1008445

PATIENT
  Age: 22 Year
  Sex: Female
  Weight: 75 kg

DRUGS (7)
  1. AZATHIOPRINE [Suspect]
     Dosage: LONGTIME USE
     Route: 048
     Dates: end: 20140324
  2. GANCICLOVIR [Suspect]
     Route: 042
     Dates: end: 20140326
  3. CALCICHEW D3 [Concomitant]
     Route: 048
  4. FOLIC ACID [Concomitant]
     Route: 048
  5. OMEPRAZOLE [Concomitant]
     Route: 048
  6. PREDNISOLONE [Concomitant]
     Route: 048
  7. SPIRONOLACTONE [Concomitant]
     Route: 048

REACTIONS (4)
  - Neutropenia [Not Recovered/Not Resolved]
  - Thrombocytopenia [Not Recovered/Not Resolved]
  - Off label use [Unknown]
  - Liver function test abnormal [Not Recovered/Not Resolved]
